FAERS Safety Report 6080111-8 (Version None)
Quarter: 2009Q1

REPORT INFORMATION
  Report Type: 
  Country: None (occurrence: None)
  Receive Date: 20090217
  Receipt Date: 20090203
  Transmission Date: 20090719
  Serious: Yes (Other)
  Sender: FDA-Public Use
  Company Number: HK-JNJFOC-20090200790

PATIENT
  Age: 47 Year
  Sex: Male

DRUGS (3)
  1. INFLIXIMAB [Suspect]
     Dosage: THIRD DOSE
     Route: 042
  2. INFLIXIMAB [Suspect]
     Route: 042
  3. INFLIXIMAB [Suspect]
     Indication: ANKYLOSING SPONDYLITIS
     Route: 042

REACTIONS (2)
  - LUNG INFECTION [None]
  - SCEDOSPORIUM INFECTION [None]
